FAERS Safety Report 5040786-9 (Version None)
Quarter: 2006Q2

REPORT INFORMATION
  Report Type: 
  Country: None (occurrence: None)
  Receive Date: 20060630
  Receipt Date: 20060630
  Transmission Date: 20061013
  Serious: No
  Sender: FDA-Public Use
  Company Number: None

PATIENT
  Sex: Female
  Weight: 59.8748 kg

DRUGS (1)
  1. CASPOFUNGIN   50 MG    MERCK [Suspect]
     Indication: SEPSIS
     Dosage: 50 MG   DAILY   IV
     Route: 042
     Dates: start: 20060331, end: 20060401

REACTIONS (1)
  - ANGIONEUROTIC OEDEMA [None]
